FAERS Safety Report 4732006-7 (Version None)
Quarter: 2005Q3

REPORT INFORMATION
  Report Type: 
  Country: None (occurrence: None)
  Receive Date: 20050722
  Receipt Date: 20041116
  Transmission Date: 20060218
  Serious: Yes (Other)
  Sender: FDA-Public Use
  Company Number: 04-000816

PATIENT
  Age: 57 Year
  Sex: Female

DRUGS (2)
  1. FEMHRT [Suspect]
     Indication: HORMONE REPLACEMENT THERAPY
     Dosage: 5/1000 UG, ORAL
     Route: 048
     Dates: start: 20000301, end: 20010101
  2. PREMPRO [Suspect]
     Indication: HORMONE REPLACEMENT THERAPY
     Dosage: ORAL
     Route: 048
     Dates: start: 19960301, end: 20040101

REACTIONS (1)
  - BREAST CANCER [None]
